FAERS Safety Report 6874564-2 (Version None)
Quarter: 2010Q3

REPORT INFORMATION
  Report Type: 
  Country: None (occurrence: None)
  Receive Date: 20100722
  Receipt Date: 20100708
  Transmission Date: 20110219
  Serious: Yes (Hospitalization, Other)
  Sender: FDA-Public Use
  Company Number: 2010SA037620

PATIENT
  Age: 64 Year
  Sex: Male

DRUGS (10)
  1. HEPARIN [Suspect]
     Indication: ACUTE CORONARY SYNDROME
     Dosage: SOLUTION NOS; INTRAVENOUS (NOT OTHERWISE SPECIFIED); CONTINUOUS
     Route: 042
     Dates: start: 20100526, end: 20100526
  2. ASPIRIN [Suspect]
     Indication: ACUTE CORONARY SYNDROME
     Dosage: SEE IMAGE
     Route: 048
     Dates: start: 20100525, end: 20100525
  3. ASPIRIN [Suspect]
     Indication: ACUTE CORONARY SYNDROME
     Dosage: SEE IMAGE
     Route: 048
     Dates: start: 20100526, end: 20100526
  4. ASPIRIN [Suspect]
     Indication: ACUTE CORONARY SYNDROME
     Dosage: SEE IMAGE
     Route: 048
     Dates: start: 20100527
  5. CLOPIDOGREL [Suspect]
     Indication: ACUTE CORONARY SYNDROME
     Dosage: 600 MILLIGRAM (S); TABLET; ORAL;DAILY
     Route: 048
     Dates: start: 20100526, end: 20100526
  6. EPTIFIBATIDE (EPTIFIBATIDE) [Suspect]
     Indication: ACUTE CORONARY SYNDROME
     Dosage: INTRAVENOUS
     Route: 042
  7. PANTOPRAZOLE SODIUM [Concomitant]
  8. MOLSIDOMINE (MOLSIDOMINE) [Concomitant]
  9. BISOPROLOL FUMARATE [Concomitant]
  10. BUMETANIDE [Concomitant]

REACTIONS (41)
  - ANTINUCLEAR ANTIBODY POSITIVE [None]
  - BACTEROIDES TEST POSITIVE [None]
  - BLOOD PRESSURE DIASTOLIC DECREASED [None]
  - BONE EROSION [None]
  - BRONCHOALVEOLAR LAVAGE ABNORMAL [None]
  - CARBON MONOXIDE DIFFUSING CAPACITY DECREASED [None]
  - CARDIAC MURMUR [None]
  - CARDIOMEGALY [None]
  - CHEST PAIN [None]
  - CHEST X-RAY ABNORMAL [None]
  - CONDITION AGGRAVATED [None]
  - DYSPNOEA [None]
  - FLATULENCE [None]
  - FOOT DEFORMITY [None]
  - FOOT FRACTURE [None]
  - HAEMOPHILUS TEST POSITIVE [None]
  - HEPATIC STEATOSIS [None]
  - INSOMNIA [None]
  - INTERSTITIAL LUNG DISEASE [None]
  - JOINT SWELLING [None]
  - LUNG INFILTRATION [None]
  - LYMPHADENOPATHY [None]
  - MYOCARDITIS [None]
  - OEDEMA PERIPHERAL [None]
  - OSTEOARTHRITIS [None]
  - PLEURAL EFFUSION [None]
  - POST PROCEDURAL HAEMORRHAGE [None]
  - POSTOPERATIVE FEVER [None]
  - PULMONARY CALCIFICATION [None]
  - PULMONARY CONGESTION [None]
  - PULMONARY FIBROSIS [None]
  - PULMONARY SARCOIDOSIS [None]
  - RALES [None]
  - RESTRICTIVE PULMONARY DISEASE [None]
  - RETINAL ARTERY STENOSIS [None]
  - RETINAL EXUDATES [None]
  - RETINAL HAEMORRHAGE [None]
  - ROTATOR CUFF SYNDROME [None]
  - STREPTOCOCCUS TEST POSITIVE [None]
  - SWELLING FACE [None]
  - SYSTEMIC SCLEROSIS [None]
